FAERS Safety Report 15837481 (Version 1)
Quarter: 2019Q1

REPORT INFORMATION
  Report Type: Report from Study
  Country: IT (occurrence: IT)
  Receive Date: 20190117
  Receipt Date: 20190117
  Transmission Date: 20190417
  Serious: Yes (Hospitalization)
  Sender: FDA-Public Use
  Company Number: IT-PFIZER INC-2019016742

PATIENT
  Age: 35 Year
  Sex: Male

DRUGS (4)
  1. LORAZEPAM. [Suspect]
     Active Substance: LORAZEPAM
     Dosage: 7.5 MG, SINGLE
     Route: 048
     Dates: start: 20181130, end: 20181130
  2. OXYCONTIN [Suspect]
     Active Substance: OXYCODONE HYDROCHLORIDE
     Dosage: 280 MG, SINGLE
     Route: 048
     Dates: start: 20181130, end: 20181130
  3. LYRICA [Suspect]
     Active Substance: PREGABALIN
     Dosage: 750 MG, SINGLE
     Route: 048
     Dates: start: 20181130, end: 20181130
  4. VENLAFAXINE HCL [Suspect]
     Active Substance: VENLAFAXINE HYDROCHLORIDE
     Dosage: 450 MG, SINGLE
     Route: 048
     Dates: start: 20181130, end: 20181130

REACTIONS (2)
  - Coma [Recovering/Resolving]
  - Drug abuse [Recovered/Resolved]

NARRATIVE: CASE EVENT DATE: 20181130
